FAERS Safety Report 24303766 (Version 2)
Quarter: 2024Q3

REPORT INFORMATION
  Report Type: Spontaneous
  Country: AR (occurrence: None)
  Receive Date: 20240910
  Receipt Date: 20240918
  Transmission Date: 20241016
  Serious: Yes (Other)
  Sender: ASTRAZENECA
  Company Number: 2024A204084

PATIENT
  Age: 69 Year
  Sex: Female

DRUGS (1)
  1. BUDESONIDE\FORMOTEROL [Suspect]
     Active Substance: BUDESONIDE\FORMOTEROL
     Indication: Product dose omission issue
     Dosage: 160/4.5 MCG, FOUR TIMES A DAY
     Route: 055
     Dates: start: 2019, end: 20240829

REACTIONS (3)
  - Femur fracture [Not Recovered/Not Resolved]
  - Hypokinesia [Unknown]
  - Device delivery system issue [Unknown]
